FAERS Safety Report 12592891 (Version 1)
Quarter: 2016Q3

REPORT INFORMATION
  Report Type: Spontaneous
  Country: PR (occurrence: PR)
  Receive Date: 20160726
  Receipt Date: 20160726
  Transmission Date: 20161109
  Serious: No
  Sender: FDA-Public Use
  Company Number: PR-ABBVIE-16P-131-1607417-00

PATIENT
  Sex: Female
  Weight: 74.91 kg

DRUGS (2)
  1. SYNTHROID [Suspect]
     Active Substance: LEVOTHYROXINE SODIUM
     Indication: HYPERTHYROIDISM
     Route: 048
     Dates: start: 2006, end: 2010
  2. SYNTHROID [Suspect]
     Active Substance: LEVOTHYROXINE SODIUM
     Indication: HYPOTHYROIDISM
     Route: 048
     Dates: start: 2010

REACTIONS (12)
  - Muscle spasms [Not Recovered/Not Resolved]
  - Hypoaesthesia [Not Recovered/Not Resolved]
  - Muscle spasms [Not Recovered/Not Resolved]
  - Diverticulum [Not Recovered/Not Resolved]
  - Diverticulitis [Recovered/Resolved]
  - Pain in extremity [Unknown]
  - Osteopenia [Not Recovered/Not Resolved]
  - Hypertension [Not Recovered/Not Resolved]
  - Folliculitis [Recovered/Resolved]
  - Nerve compression [Not Recovered/Not Resolved]
  - Diverticulitis [Not Recovered/Not Resolved]
  - Abdominal pain [Unknown]

NARRATIVE: CASE EVENT DATE: 2006
